FAERS Safety Report 8157684-4 (Version None)
Quarter: 2012Q1

REPORT INFORMATION
  Report Type: 
  Country: None (occurrence: None)
  Receive Date: 20120222
  Receipt Date: 20120214
  Transmission Date: 20120608
  Serious: Yes (Hospitalization, Other)
  Sender: FDA-Public Use
  Company Number: US-PFIZER INC-2012040054

PATIENT
  Sex: Female

DRUGS (1)
  1. LYRICA [Suspect]
     Dosage: UNK
     Dates: start: 20120101, end: 20120101

REACTIONS (13)
  - RETCHING [None]
  - HYPOTENSION [None]
  - BALANCE DISORDER [None]
  - MULTIPLE MYELOMA [None]
  - SOMNOLENCE [None]
  - VOMITING [None]
  - MALAISE [None]
  - CONFUSIONAL STATE [None]
  - ASTHENIA [None]
  - TOOTH EXTRACTION [None]
  - RASH MACULAR [None]
  - RASH [None]
  - FATIGUE [None]
